FAERS Safety Report 4766198-0 (Version None)
Quarter: 2005Q3

REPORT INFORMATION
  Report Type: 
  Country: None (occurrence: None)
  Receive Date: 20050912
  Receipt Date: 20050607
  Transmission Date: 20060218
  Serious: Yes (Death, Life-Threatening)
  Sender: FDA-Public Use
  Company Number: US-MERCK-0506USA01408

PATIENT
  Age: 58 Year
  Sex: Female
  Weight: 73 kg

DRUGS (10)
  1. VIOXX [Suspect]
     Indication: ARTHRALGIA
     Route: 048
     Dates: start: 19990101, end: 20030706
  2. VIOXX [Suspect]
     Indication: BACK PAIN
     Route: 048
     Dates: start: 19990101, end: 20030706
  3. OMEPRAZOLE [Concomitant]
     Indication: GASTROOESOPHAGEAL REFLUX DISEASE
     Route: 065
  4. AMBIEN [Concomitant]
     Indication: SLEEP DISORDER
     Route: 065
  5. ENULOSE [Concomitant]
     Indication: IRRITABLE BOWEL SYNDROME
     Route: 065
  6. PREDNISONE [Concomitant]
     Indication: ARTHRITIS
     Route: 065
  7. KLOR-CON [Concomitant]
     Indication: HYPOKALAEMIA
     Route: 065
  8. ALLEGRA [Concomitant]
     Indication: HYPERSENSITIVITY
     Route: 065
  9. AMITRIPTYLINE HYDROCHLORIDE [Concomitant]
     Indication: DEPRESSION
     Route: 065
  10. COMBIVENT [Concomitant]
     Route: 065

REACTIONS (9)
  - BLOOD CHOLESTEROL INCREASED [None]
  - CARDIOVASCULAR DISORDER [None]
  - GASTRIC HAEMORRHAGE [None]
  - HYPERTENSION [None]
  - MULTI-ORGAN DISORDER [None]
  - MYOCARDIAL INFARCTION [None]
  - MYOCARDIAL ISCHAEMIA [None]
  - OEDEMA PERIPHERAL [None]
  - ORGAN FAILURE [None]
